FAERS Safety Report 23709036 (Version 1)
Quarter: 2024Q2

REPORT INFORMATION
  Report Type: Spontaneous
  Country: US (occurrence: US)
  Receive Date: 20240404
  Receipt Date: 20240404
  Transmission Date: 20240716
  Serious: No
  Sender: FDA-Public Use
  Company Number: US-PFIZER INC-202400078816

PATIENT
  Age: 49 Year
  Sex: Female

DRUGS (1)
  1. DUAVEE [Suspect]
     Active Substance: BAZEDOXIFENE ACETATE\ESTROGENS, CONJUGATED
     Dosage: UNK
     Dates: start: 202403

REACTIONS (3)
  - Oropharyngeal pain [Not Recovered/Not Resolved]
  - Tracheal pain [Not Recovered/Not Resolved]
  - Palatal disorder [Not Recovered/Not Resolved]
